FAERS Safety Report 4525293-1 (Version None)
Quarter: 2004Q4

REPORT INFORMATION
  Report Type: 
  Country: None (occurrence: None)
  Receive Date: 20041116
  Receipt Date: 20040730
  Transmission Date: 20050328
  Serious: No
  Sender: FDA-Public Use
  Company Number: S04-USA-05576-01

PATIENT
  Age: 52 Year
  Sex: Female

DRUGS (5)
  1. NAMENDA [Suspect]
     Indication: PAIN
     Dosage: 5 MG QD PO
     Route: 048
     Dates: start: 20040728, end: 20040728
  2. METHADONE HCL [Concomitant]
  3. XANAX [Concomitant]
  4. VIOXX [Concomitant]
  5. NEURONTIN [Concomitant]

REACTIONS (2)
  - DIZZINESS [None]
  - PANIC ATTACK [None]
